FAERS Safety Report 9004488 (Version 3)
Quarter: 2013Q1

REPORT INFORMATION
  Report Type: Spontaneous
  Country: US (occurrence: US)
  Receive Date: 20130108
  Receipt Date: 20130313
  Transmission Date: 20140127
  Serious: No
  Sender: FDA-Public Use
  Company Number: US-ASTRAZENECA-2012SE96184

PATIENT
  Age: 64 Year
  Sex: Male

DRUGS (5)
  1. CAPRELSA [Suspect]
     Indication: THYROID CANCER
     Route: 048
     Dates: start: 20121214
  2. CAPRELSA [Suspect]
     Indication: THYROID CANCER
     Route: 048
     Dates: start: 20121214
  3. OXYCODONE [Concomitant]
  4. ZOMETA [Concomitant]
  5. DIPHENOXYLATE [Concomitant]

REACTIONS (4)
  - Constipation [Unknown]
  - Decreased appetite [Unknown]
  - Rash [Unknown]
  - Diarrhoea [Unknown]
